FAERS Safety Report 9641166 (Version 1)
Quarter: 2013Q4

REPORT INFORMATION
  Report Type: Spontaneous
  Country: US (occurrence: US)
  Receive Date: 20131023
  Receipt Date: 20131023
  Transmission Date: 20140711
  Serious: Yes (Other)
  Sender: FDA-Public Use
  Company Number: US-PFIZER INC-2013300489

PATIENT
  Age: 48 Year
  Sex: Female
  Weight: 67 kg

DRUGS (2)
  1. CELEBREX [Suspect]
     Indication: OSTEOARTHRITIS
     Dosage: 200 MG, 2X/DAY
     Dates: start: 2004
  2. CELEBREX [Suspect]
     Indication: FIBROMYALGIA

REACTIONS (2)
  - Tooth infection [Unknown]
  - Gastric disorder [Unknown]
